FAERS Safety Report 15662003 (Version 3)
Quarter: 2019Q1

REPORT INFORMATION
  Report Type: Spontaneous
  Country: JP (occurrence: JP)
  Receive Date: 20181127
  Receipt Date: 20190129
  Transmission Date: 20190417
  Serious: Yes (Hospitalization)
  Sender: FDA-Public Use
  Company Number: JP-DSJP-DSJ-2018-150455

PATIENT

DRUGS (3)
  1. WARFARIN                           /00014803/ [Suspect]
     Active Substance: WARFARIN
     Dosage: UNK
     Route: 065
  2. OLMETEC OD [Suspect]
     Active Substance: OLMESARTAN MEDOXOMIL
     Indication: HYPERTENSION
     Dosage: UNK
     Route: 065
  3. AMLODIPINE                         /00972402/ [Suspect]
     Active Substance: AMLODIPINE BESYLATE
     Dosage: UNK
     Route: 065

REACTIONS (9)
  - International normalised ratio increased [Unknown]
  - Retroperitoneal haematoma [Unknown]
  - Heart rate increased [Unknown]
  - Fracture [Unknown]
  - Platelet count decreased [Unknown]
  - Fall [Unknown]
  - Extravasation [Recovered/Resolved]
  - Blood pressure decreased [Unknown]
  - Haemoglobin decreased [Unknown]
